FAERS Safety Report 5201739-0 (Version None)
Quarter: 2006Q4

REPORT INFORMATION
  Report Type: 
  Country: None (occurrence: None)
  Receive Date: 20061013
  Receipt Date: 20050901
  Transmission Date: 20070319
  Serious: Yes (Life-Threatening)
  Sender: FDA-Public Use
  Company Number: S05-USA-04213-01

PATIENT
  Age: 38 Year
  Sex: Female

DRUGS (5)
  1. LEXAPRO [Suspect]
     Indication: DEPRESSION
     Dosage: 40 MG QD PO
     Route: 048
     Dates: start: 20030501, end: 20030801
  2. PEPCID [Suspect]
     Indication: DYSPEPSIA
     Dates: start: 20030601, end: 20030601
  3. TYLENOL [Suspect]
     Indication: HEADACHE
     Dates: start: 20030101
  4. MOTRIN [Suspect]
     Indication: HEADACHE
     Dates: start: 20030101
  5. KLONOPIN [Concomitant]

REACTIONS (4)
  - ANAPHYLACTIC REACTION [None]
  - DYSPEPSIA [None]
  - RASH [None]
  - URTICARIA [None]
